FAERS Safety Report 5919361-7 (Version None)
Quarter: 2008Q4

REPORT INFORMATION
  Report Type: 
  Country: None (occurrence: None)
  Receive Date: 20081015
  Receipt Date: 20081010
  Transmission Date: 20090506
  Serious: Yes (Hospitalization)
  Sender: FDA-Public Use
  Company Number: A0752037A

PATIENT
  Age: 68 Year
  Sex: Female
  Weight: 60 kg

DRUGS (1)
  1. SERETIDE [Suspect]
     Route: 065
     Dates: start: 20051001, end: 20071001

REACTIONS (2)
  - OROPHARYNGEAL PAIN [None]
  - PULMONARY HAEMORRHAGE [None]
